FAERS Safety Report 12478244 (Version 1)
Quarter: 2016Q2

REPORT INFORMATION
  Report Type: Spontaneous
  Country: CA (occurrence: CA)
  Receive Date: 20160617
  Receipt Date: 20160617
  Transmission Date: 20160815
  Serious: Yes (Other)
  Sender: FDA-Public Use
  Company Number: CA-GILEAD-2016-0216904

PATIENT
  Age: 32 Year
  Sex: Male
  Weight: 88 kg

DRUGS (1)
  1. COMPLERA [Suspect]
     Active Substance: EMTRICITABINE\RILPIVIRINE HYDROCHLORIDE\TENOFOVIR DISOPROXIL FUMARATE
     Indication: HIV INFECTION
     Route: 065

REACTIONS (2)
  - Genotype drug resistance test positive [Unknown]
  - Treatment failure [Recovered/Resolved with Sequelae]

NARRATIVE: CASE EVENT DATE: 20130909
